FAERS Safety Report 25292451 (Version 1)
Quarter: 2025Q2

REPORT INFORMATION
  Report Type: Spontaneous
  Country: US (occurrence: US)
  Receive Date: 20250510
  Receipt Date: 20250510
  Transmission Date: 20250717
  Serious: No
  Sender: SANOFI AVENTIS
  Company Number: US-SA-2025SA124022

PATIENT
  Age: 75 Year
  Sex: Male
  Weight: 69.09 kg

DRUGS (3)
  1. PRIFTIN [Suspect]
     Active Substance: RIFAPENTINE
     Indication: Latent tuberculosis
     Dosage: 6 DF, QW (6 TABLETS WEEKLY FOR 12 WEEKS)
     Route: 048
     Dates: start: 20241220, end: 20250324
  2. ISONIAZID [Suspect]
     Active Substance: ISONIAZID
     Indication: Latent tuberculosis
     Dosage: 3 DF, QW (300MG, 3 TABS PO/WEEK FOR 12 WEEKS)
     Route: 048
  3. PYRIDOXINE [Suspect]
     Active Substance: PYRIDOXINE
     Indication: Latent tuberculosis
     Dosage: 50 MG, QW (50MG PO/WEEK FOR 12 WEEKS)
     Route: 048

REACTIONS (1)
  - Incorrect dose administered [Unknown]

NARRATIVE: CASE EVENT DATE: 20241220
